FAERS Safety Report 4608525-0 (Version None)
Quarter: 2005Q1

REPORT INFORMATION
  Report Type: 
  Country: None (occurrence: None)
  Receive Date: 20050311
  Receipt Date: 20050311
  Transmission Date: 20050727
  Serious: Yes (Hospitalization)
  Sender: FDA-Public Use
  Company Number: None

PATIENT
  Age: 60 Year
  Sex: Male
  Weight: 123.832 kg

DRUGS (1)
  1. ENBREL [Suspect]
     Indication: PSORIASIS
     Dosage: 25 MG 2X WEEK SUBCUTANEOUS
     Route: 058
     Dates: start: 20031114, end: 20041020

REACTIONS (7)
  - CHEST PAIN [None]
  - CORONARY ARTERY DISEASE [None]
  - EJECTION FRACTION DECREASED [None]
  - MYOCARDIAL INFARCTION [None]
  - OEDEMA PERIPHERAL [None]
  - ORTHOPNOEA [None]
  - SOFT TISSUE DISORDER [None]
